FAERS Safety Report 5989430-4 (Version None)
Quarter: 2008Q4

REPORT INFORMATION
  Report Type: 
  Country: None (occurrence: None)
  Receive Date: 20081205
  Receipt Date: 20081121
  Transmission Date: 20090506
  Serious: Yes (Hospitalization)
  Sender: FDA-Public Use
  Company Number: KV200800617

PATIENT
  Age: 69 Year
  Sex: Female

DRUGS (1)
  1. MORPHINE SULFATE [Suspect]
     Indication: NON-CARDIAC CHEST PAIN
     Dosage: 15 MG, BID, ORAL
     Route: 048
     Dates: start: 20080711, end: 20080801

REACTIONS (2)
  - EUPHORIC MOOD [None]
  - PRODUCT QUALITY ISSUE [None]
